FAERS Safety Report 18199178 (Version 2)
Quarter: 2020Q3

REPORT INFORMATION
  Report Type: Spontaneous
  Country: US (occurrence: US)
  Receive Date: 20200826
  Receipt Date: 20200831
  Transmission Date: 20201103
  Serious: Yes (Hospitalization)
  Sender: FDA-Public Use
  Company Number: US-TEVA-2020-US-1818283

PATIENT
  Age: 40 Year
  Sex: Female

DRUGS (5)
  1. TACROLIMUS. [Suspect]
     Active Substance: TACROLIMUS
     Indication: IMMUNOSUPPRESSANT DRUG THERAPY
     Route: 065
  2. ATENOLOL. [Concomitant]
     Active Substance: ATENOLOL
     Indication: SINUS TACHYCARDIA
     Route: 065
  3. ACICLOVIR [Concomitant]
     Active Substance: ACYCLOVIR
     Indication: PROPHYLAXIS
     Dosage: 800 MILLIGRAM DAILY;
     Route: 065
  4. TRIMETHOPRIM/SULFAMETHOXAZOLE [Concomitant]
     Active Substance: SULFAMETHOXAZOLE\TRIMETHOPRIM
     Indication: SINUS TACHYCARDIA
     Route: 065
  5. METHYLPREDNISOLONE. [Suspect]
     Active Substance: METHYLPREDNISOLONE
     Indication: IMMUNOSUPPRESSANT DRUG THERAPY
     Dosage: 8 MILLIGRAM DAILY;
     Route: 065

REACTIONS (17)
  - Acute kidney injury [Recovering/Resolving]
  - Mycobacterium abscessus infection [Recovering/Resolving]
  - Leukocytosis [Recovering/Resolving]
  - Somnolence [Recovering/Resolving]
  - Dry mouth [Recovering/Resolving]
  - Mucosal dryness [Recovering/Resolving]
  - Hyperkalaemia [Recovering/Resolving]
  - Nausea [Recovering/Resolving]
  - Asthenia [Recovering/Resolving]
  - Cachexia [Recovering/Resolving]
  - Hypertension [Recovering/Resolving]
  - Hyperglycaemia [Recovering/Resolving]
  - Muscle spasms [Recovered/Resolved]
  - Toxicity to various agents [Recovered/Resolved]
  - Encephalopathy [Recovering/Resolving]
  - Pseudomonas infection [Recovering/Resolving]
  - Pneumonia [Recovering/Resolving]
